FAERS Safety Report 7991692-9 (Version None)
Quarter: 2011Q4

REPORT INFORMATION
  Report Type: 
  Country: None (occurrence: None)
  Receive Date: 20111219
  Receipt Date: 20111207
  Transmission Date: 20120403
  Serious: Yes (Hospitalization)
  Sender: FDA-Public Use
  Company Number: PHHY2011KR108783

PATIENT
  Sex: Male

DRUGS (1)
  1. CLOZARIL [Suspect]
     Indication: SCHIZOPHRENIA
     Dosage: 350 MG, UNK
     Route: 048
     Dates: start: 20111006, end: 20111025

REACTIONS (3)
  - ERYTHEMA MULTIFORME [None]
  - ELECTROCARDIOGRAM QT PROLONGED [None]
  - HYPERSENSITIVITY [None]
